FAERS Safety Report 4462243-0 (Version None)
Quarter: 2004Q3

REPORT INFORMATION
  Report Type: 
  Country: None (occurrence: None)
  Receive Date: 20040929
  Receipt Date: 20030602
  Transmission Date: 20050211
  Serious: Yes (Other)
  Sender: FDA-Public Use
  Company Number: US-GLAXOSMITHKLINE-A0410501A

PATIENT
  Age: 48 Year
  Sex: Female
  Weight: 103.2 kg

DRUGS (13)
  1. WELLBUTRIN [Suspect]
     Indication: DEPRESSION
     Dosage: 150MG SEE DOSAGE TEXT
     Route: 048
     Dates: start: 20021101
  2. GAVISCON [Concomitant]
  3. BLACK COHOSH [Concomitant]
  4. ECHINACEA [Concomitant]
  5. ALOE VERA [Concomitant]
  6. TYLENOL [Concomitant]
  7. CALCIUM [Concomitant]
  8. ASPIRIN [Concomitant]
  9. AMITRIPTYLINE HCL [Concomitant]
     Dates: start: 20021101
  10. GINGER ROOT [Concomitant]
  11. ACIDOPHILUS [Concomitant]
  12. HAWTHORN BERRY [Concomitant]
  13. KAVA-KAVA [Concomitant]

REACTIONS (7)
  - ANAEMIA [None]
  - CHEST PAIN [None]
  - DYSPEPSIA [None]
  - DYSPHAGIA [None]
  - GASTRIC DISORDER [None]
  - GASTROOESOPHAGEAL REFLUX DISEASE [None]
  - NASOPHARYNGEAL DISORDER [None]
